FAERS Safety Report 7267528-0 (Version None)
Quarter: 2011Q1

REPORT INFORMATION
  Report Type: 
  Country: None (occurrence: None)
  Receive Date: 20110201
  Receipt Date: 20110124
  Transmission Date: 20110831
  Serious: Yes (Death)
  Sender: FDA-Public Use
  Company Number: DE-JNJFOC-20091103433

PATIENT
  Age: 8 Decade
  Sex: Male

DRUGS (2)
  1. ABCIXIMAB [Suspect]
     Indication: ILL-DEFINED DISORDER
     Route: 022
  2. ABCIXIMAB [Suspect]
     Dosage: @19:14, DURATION 12 HOURS, 2 MINUTES.
     Route: 042

REACTIONS (5)
  - CARDIAC FAILURE [None]
  - MYOCARDIAL ISCHAEMIA [None]
  - CARDIOGENIC SHOCK [None]
  - INCORRECT ROUTE OF DRUG ADMINISTRATION [None]
  - VENTRICULAR FIBRILLATION [None]
